FAERS Safety Report 4511758-5 (Version None)
Quarter: 2004Q4

REPORT INFORMATION
  Report Type: 
  Country: None (occurrence: None)
  Receive Date: 20041124
  Receipt Date: 20041116
  Transmission Date: 20050328
  Serious: Yes (Hospitalization)
  Sender: FDA-Public Use
  Company Number: US-JNJFOC-20040503734

PATIENT
  Sex: Female
  Weight: 66.45 kg

DRUGS (30)
  1. TOPAMAX [Suspect]
     Dosage: DOSAGE TAPERED.
     Route: 049
  2. TOPAMAX [Suspect]
     Route: 049
  3. TOPAMAX [Suspect]
     Route: 049
  4. TOPAMAX [Suspect]
     Route: 049
  5. TOPAMAX [Suspect]
     Route: 049
  6. TOPAMAX [Suspect]
     Route: 049
  7. TRANZINE [Concomitant]
  8. CALCIUM CARBONATE [Concomitant]
     Indication: OSTEOPOROSIS PROPHYLAXIS
     Route: 049
  9. VITAMIN D [Concomitant]
     Indication: OSTEOPOROSIS PROPHYLAXIS
     Route: 049
  10. PEG-ELECTROLYTE SOLUTION [Concomitant]
     Indication: CONSTIPATION
     Route: 049
  11. LEVOTHYROXINE SODIUM [Concomitant]
     Indication: HYPOTHYROIDISM
     Route: 049
  12. LORATADINE [Concomitant]
     Route: 049
  13. MULTI-VITAMIN [Concomitant]
     Route: 049
  14. MULTI-VITAMIN [Concomitant]
     Route: 049
  15. MULTI-VITAMIN [Concomitant]
     Route: 049
  16. MULTI-VITAMIN [Concomitant]
     Route: 049
  17. MULTI-VITAMIN [Concomitant]
     Route: 049
  18. MULTI-VITAMIN [Concomitant]
     Route: 049
  19. MULTI-VITAMIN [Concomitant]
     Route: 049
  20. MULTI-VITAMIN [Concomitant]
     Indication: NUTRITIONAL SUPPORT
     Route: 049
  21. ALBUTEROL [Concomitant]
     Indication: ASTHMA
     Route: 055
  22. MOMETASONE [Concomitant]
     Route: 055
  23. SODIUM CHLORIDE [Concomitant]
  24. SODIUM CHLORIDE [Concomitant]
  25. SODIUM CHLORIDE [Concomitant]
  26. SODIUM CHLORIDE [Concomitant]
  27. CARBAMAZEPINE [Concomitant]
     Dosage: VARYING DOSES
     Route: 049
  28. CARBAMAZEPINE [Concomitant]
     Route: 049
  29. DIVALPROEX SODIUM [Concomitant]
     Dosage: DOSE INCREASED TO 500/500/750 FOLLOWING HOSPITALIZATION IN JAN 03.
     Route: 049
  30. CLORAZEPATE DIPOTASSIUM [Concomitant]
     Route: 049

REACTIONS (4)
  - ATELECTASIS [None]
  - BLOOD THYROID STIMULATING HORMONE INCREASED [None]
  - HYPOTHERMIA [None]
  - PNEUMONIA [None]
